FAERS Safety Report 6044610-7 (Version None)
Quarter: 2009Q1

REPORT INFORMATION
  Report Type: 
  Country: None (occurrence: None)
  Receive Date: 20090120
  Receipt Date: 20090113
  Transmission Date: 20090719
  Serious: Yes (Hospitalization)
  Sender: FDA-Public Use
  Company Number: US-BIOGENIDEC-2008BI033531

PATIENT
  Age: 48 Year
  Sex: Male

DRUGS (8)
  1. TYSABRI [Suspect]
     Indication: MULTIPLE SCLEROSIS
     Route: 042
     Dates: start: 20080618
  2. BACLOFEN [Concomitant]
  3. AMBIEN [Concomitant]
  4. COLACE [Concomitant]
  5. MIRALAX [Concomitant]
  6. PRILOSEC [Concomitant]
  7. TYLENOL (CAPLET) [Concomitant]
  8. LOVENOX [Concomitant]

REACTIONS (6)
  - ACTIVITIES OF DAILY LIVING IMPAIRED [None]
  - BLEPHAROSPASM [None]
  - FATIGUE [None]
  - MUSCULAR WEAKNESS [None]
  - UROSEPSIS [None]
  - WHITE BLOOD CELL COUNT INCREASED [None]
